FAERS Safety Report 22022326 (Version 2)
Quarter: 2023Q2

REPORT INFORMATION
  Report Type: Spontaneous
  Country: JP (occurrence: JP)
  Receive Date: 20230222
  Receipt Date: 20230623
  Transmission Date: 20230722
  Serious: Yes (Other)
  Sender: FDA-Public Use
  Company Number: JP-FFTC-BA202300152

PATIENT
  Age: 70 Year
  Sex: Female

DRUGS (2)
  1. LUTATHERA [Suspect]
     Active Substance: LUTETIUM OXODOTREOTIDE LU-177
     Indication: Neuroendocrine tumour
     Dosage: UNK
     Route: 042
     Dates: start: 20220623, end: 20220818
  2. ARGININE\LYSINE [Suspect]
     Active Substance: ARGININE\LYSINE
     Indication: Product used for unknown indication
     Dosage: UNK
     Route: 042

REACTIONS (1)
  - Aplastic anaemia [Not Recovered/Not Resolved]

NARRATIVE: CASE EVENT DATE: 20220901
